FAERS Safety Report 8611915-2 (Version None)
Quarter: 2012Q3

REPORT INFORMATION
  Report Type: 
  Country: None (occurrence: None)
  Receive Date: 20120822
  Receipt Date: 20120801
  Transmission Date: 20120928
  Serious: No
  Sender: FDA-Public Use
  Company Number: US-BAYER-2012-083697

PATIENT
  Age: 58 Year
  Sex: Female

DRUGS (4)
  1. RIFAMPIN [Concomitant]
  2. AVELOX [Suspect]
     Dosage: 0.5 UNK, UNK
  3. AZITHROMYCIN [Concomitant]
  4. AVELOX [Suspect]
     Indication: MYCOBACTERIAL INFECTION
     Dosage: 1 UNK, UNK
     Dates: start: 20120730

REACTIONS (4)
  - VOMITING [None]
  - NAUSEA [None]
  - ANXIETY [None]
  - DIARRHOEA [None]
